FAERS Safety Report 20927398 (Version 1)
Quarter: 2022Q2

REPORT INFORMATION
  Report Type: Spontaneous
  Country: US (occurrence: US)
  Receive Date: 20220607
  Receipt Date: 20220607
  Transmission Date: 20220721
  Serious: No
  Sender: FDA-Public Use
  Company Number: US-PERRIGO-21US030050

PATIENT
  Age: 37 Year
  Sex: Male
  Weight: 79.365 kg

DRUGS (3)
  1. MINOXIDIL [Suspect]
     Active Substance: MINOXIDIL
     Indication: Hair growth abnormal
     Dosage: UNKNOWN,  QD
     Route: 061
     Dates: start: 20210401, end: 20210530
  2. MINOXIDIL [Suspect]
     Active Substance: MINOXIDIL
     Dosage: UNKNOWN, SINGLE
     Route: 061
     Dates: start: 20210701, end: 20210701
  3. FINASTERIDE [Concomitant]
     Active Substance: FINASTERIDE
     Indication: Hair growth abnormal
     Dosage: UNKNOWN, UNKNOWN
     Route: 065
     Dates: start: 20210401

REACTIONS (8)
  - Application site rash [Recovered/Resolved]
  - Application site scab [Recovered/Resolved]
  - Application site inflammation [Recovered/Resolved]
  - Paraesthesia [Recovered/Resolved]
  - Application site irritation [Recovered/Resolved]
  - Application site pain [Recovered/Resolved]
  - Incorrect dose administered [Recovered/Resolved]
  - Inappropriate schedule of product administration [Recovered/Resolved]

NARRATIVE: CASE EVENT DATE: 20210401
